FAERS Safety Report 15772998 (Version 1)
Quarter: 2018Q4

REPORT INFORMATION
  Report Type: Not Available
  Country: US (occurrence: US)
  Receive Date: 20181228
  Receipt Date: 20181228
  Transmission Date: 20190205
  Serious: No
  Sender: FDA-Public Use
  Company Number: US-NEUROCRINE BIOSCIENCES INC.-2018NBI03598

PATIENT
  Age: 42 Year
  Sex: Female

DRUGS (10)
  1. DOXEPIN [Concomitant]
     Active Substance: DOXEPIN
  2. ZYPREXA [Concomitant]
     Active Substance: OLANZAPINE
  3. SINGULAIR [Concomitant]
     Active Substance: MONTELUKAST SODIUM
  4. BENZTROPIN [Concomitant]
  5. INGREZZA [Suspect]
     Active Substance: VALBENAZINE
     Indication: TARDIVE DYSKINESIA
     Dosage: 40 X 2 CAPSULES EVERY NIGHT
     Route: 048
     Dates: start: 20180713, end: 2018
  6. GABAPENTIN. [Concomitant]
     Active Substance: GABAPENTIN
  7. PRILOSEC [Concomitant]
     Active Substance: OMEPRAZOLE MAGNESIUM
  8. ZOLOFT [Concomitant]
     Active Substance: SERTRALINE HYDROCHLORIDE
  9. CALCIUM+ VIT D [Concomitant]
  10. CLARITIN [Concomitant]
     Active Substance: LORATADINE

REACTIONS (2)
  - Asthenia [Unknown]
  - Fall [Unknown]

NARRATIVE: CASE EVENT DATE: 20181028
